FAERS Safety Report 4810269-7 (Version None)
Quarter: 2005Q4

REPORT INFORMATION
  Report Type: 
  Country: None (occurrence: None)
  Receive Date: 20051024
  Receipt Date: 20051013
  Transmission Date: 20060501
  Serious: Yes (Hospitalization, Other)
  Sender: FDA-Public Use
  Company Number: 2005-10-0533

PATIENT
  Age: 66 Year
  Sex: Female

DRUGS (3)
  1. VIRAFERONPEG [Suspect]
     Indication: HEPATITIS
     Dosage: 80UG QWK SUBCUTANEOUS
     Route: 058
     Dates: start: 20040725
  2. REBETOL [Suspect]
     Indication: HEPATITIS
     Dosage: 600 MG QD ORAL
     Route: 048
     Dates: start: 20040727
  3. RIFATER [Suspect]
     Indication: TUBERCULOSIS
     Dosage: 5 TAB QD ORAL
     Route: 048
     Dates: start: 20041229

REACTIONS (3)
  - AGRANULOCYTOSIS [None]
  - LEUKOPENIA [None]
  - NEUTROPENIA [None]
